FAERS Safety Report 8545133-3 (Version None)
Quarter: 2012Q3

REPORT INFORMATION
  Report Type: 
  Country: None (occurrence: None)
  Receive Date: 20120727
  Receipt Date: 20120529
  Transmission Date: 20120928
  Serious: Yes (Other)
  Sender: FDA-Public Use
  Company Number: AU-ROCHE-1093233

PATIENT
  Sex: Male

DRUGS (3)
  1. AVASTIN [Suspect]
     Indication: COLORECTAL CANCER METASTATIC
     Dates: end: 20120523
  2. OXALIPLATIN [Concomitant]
  3. FLUOROURACIL [Concomitant]

REACTIONS (1)
  - DISEASE PROGRESSION [None]
